FAERS Safety Report 6711785-3 (Version None)
Quarter: 2010Q2

REPORT INFORMATION
  Report Type: 
  Country: None (occurrence: None)
  Receive Date: 20100505
  Receipt Date: 20100426
  Transmission Date: 20101027
  Serious: Yes (Hospitalization)
  Sender: FDA-Public Use
  Company Number: B0650985A

PATIENT
  Age: 30 Year
  Sex: Male
  Weight: 60 kg

DRUGS (3)
  1. ZIAGEN [Suspect]
     Indication: HIV INFECTION
     Dosage: 600MG PER DAY
     Route: 065
     Dates: start: 20100406, end: 20100418
  2. EPIVIR [Suspect]
     Indication: HIV INFECTION
     Route: 065
     Dates: start: 20100406, end: 20100419
  3. EFAVIRENZ [Suspect]
     Indication: HIV INFECTION
     Route: 048
     Dates: start: 20100406

REACTIONS (12)
  - ABDOMINAL PAIN [None]
  - ASCITES [None]
  - BLOOD AMYLASE INCREASED [None]
  - BLOOD CREATININE INCREASED [None]
  - DIARRHOEA [None]
  - HEPATOMEGALY [None]
  - LIVER DISORDER [None]
  - NAUSEA [None]
  - PANCREATIC DISORDER [None]
  - PANCREATITIS [None]
  - SPLENOMEGALY [None]
  - VOMITING [None]
